FAERS Safety Report 19370832 (Version 2)
Quarter: 2021Q2

REPORT INFORMATION
  Report Type: Spontaneous
  Country: US (occurrence: US)
  Receive Date: 20210603
  Receipt Date: 20210617
  Transmission Date: 20210717
  Serious: Yes (Other)
  Sender: FDA-Public Use
  Company Number: US-ALKERMES INC.-ALK-2021-002720

PATIENT
  Sex: Female

DRUGS (2)
  1. SUBOXONE [Suspect]
     Active Substance: BUPRENORPHINE HYDROCHLORIDE\NALOXONE HYDROCHLORIDE
     Indication: DRUG DEPENDENCE
     Dosage: UNK
  2. VIVITROL [Suspect]
     Active Substance: NALTREXONE
     Indication: DRUG DEPENDENCE
     Dosage: 380 MILLIGRAM, QMO
     Route: 030
     Dates: start: 20210331

REACTIONS (30)
  - Autoscopy [Unknown]
  - Suicidal ideation [Unknown]
  - Depressed mood [Unknown]
  - Anger [Unknown]
  - Haematotoxicity [Unknown]
  - Tremor [Unknown]
  - Insomnia [Unknown]
  - Injection site pain [Not Recovered/Not Resolved]
  - Medical induction of coma [Recovered/Resolved]
  - Loss of personal independence in daily activities [Not Recovered/Not Resolved]
  - Gait disturbance [Not Recovered/Not Resolved]
  - Vomiting [Unknown]
  - Injection site reaction [Not Recovered/Not Resolved]
  - Rhabdomyolysis [Unknown]
  - Confusional state [Unknown]
  - Pain in extremity [Unknown]
  - Blood pressure decreased [Recovered/Resolved]
  - Tachycardia [Unknown]
  - Bone pain [Unknown]
  - Influenza like illness [Unknown]
  - Injection site mass [Not Recovered/Not Resolved]
  - Pain [Unknown]
  - Hallucination [Unknown]
  - Diarrhoea [Unknown]
  - Delusion [Unknown]
  - Proctalgia [Unknown]
  - Emotional distress [Unknown]
  - Withdrawal syndrome [Not Recovered/Not Resolved]
  - Dehydration [Unknown]
  - Agitation [Unknown]

NARRATIVE: CASE EVENT DATE: 2021
